FAERS Safety Report 6708832-1 (Version None)
Quarter: 2010Q2

REPORT INFORMATION
  Report Type: 
  Country: None (occurrence: None)
  Receive Date: 20100503
  Receipt Date: 20100503
  Transmission Date: 20101027
  Serious: Yes (Hospitalization, Other)
  Sender: FDA-Public Use
  Company Number: None

PATIENT
  Sex: Female
  Weight: 69 kg

DRUGS (13)
  1. OCTAGAM [Suspect]
     Indication: DERMATOMYOSITIS
     Dosage: 5 GRAMS DAILY X 2DAYS Q2W IV DRIP
     Route: 041
     Dates: start: 20100419, end: 20100419
  2. OCTAGAM [Suspect]
     Indication: DERMATOMYOSITIS
     Dosage: 30 GRAMS DAILY X 2DAYS Q2W IV DRIP
     Route: 041
     Dates: start: 20100419, end: 20100419
  3. DIPHENHYDRAMINE [Concomitant]
  4. DRISDOL [Concomitant]
  5. FISH OIL [Concomitant]
  6. FOLIC ACID [Concomitant]
  7. METHOTREXATE [Concomitant]
  8. MIACALCIN [Concomitant]
  9. NEXIUM [Concomitant]
  10. PREDNISONE [Concomitant]
  11. PROVENTIL [Concomitant]
  12. SODIUM CHLORIDE [Concomitant]
  13. SYNTROID [Concomitant]

REACTIONS (9)
  - ASTHENIA [None]
  - BLOOD PRESSURE INCREASED [None]
  - CEREBROVASCULAR ACCIDENT [None]
  - CONFUSIONAL STATE [None]
  - DIZZINESS [None]
  - INFUSION RELATED REACTION [None]
  - MOVEMENT DISORDER [None]
  - VERTIGO [None]
  - VOMITING [None]
